FAERS Safety Report 10844781 (Version 1)
Quarter: 2015Q1

REPORT INFORMATION
  Report Type: Spontaneous
  Country: HR (occurrence: HR)
  Receive Date: 20150220
  Receipt Date: 20150220
  Transmission Date: 20150721
  Serious: Yes (Disabling)
  Sender: FDA-Public Use
  Company Number: HR-TEVA-540905ISR

PATIENT
  Sex: Male

DRUGS (2)
  1. PIOGLITAZONE PLIVA [Suspect]
     Active Substance: PIOGLITAZONE
     Indication: TYPE 2 DIABETES MELLITUS
     Route: 048
  2. SORITIS [Concomitant]
     Route: 048

REACTIONS (1)
  - Papilloedema [Not Recovered/Not Resolved]
